FAERS Safety Report 4329925-2 (Version None)
Quarter: 2004Q1

REPORT INFORMATION
  Report Type: 
  Country: None (occurrence: None)
  Receive Date: 20040329
  Receipt Date: 20040311
  Transmission Date: 20041129
  Serious: Yes (Other)
  Sender: FDA-Public Use
  Company Number: ZANA001158

PATIENT
  Age: 70 Year
  Sex: Female

DRUGS (2)
  1. TIZANIDINE HCL [Suspect]
     Indication: MUSCLE SPASTICITY
     Dosage: 6 MG DAILY ORAL
     Route: 048
  2. MUSARIL (TETRAZEPAM) [Concomitant]

REACTIONS (1)
  - BRADYCARDIA [None]
